FAERS Safety Report 25625615 (Version 1)
Quarter: 2025Q3

REPORT INFORMATION
  Report Type: Spontaneous
  Country: US (occurrence: US)
  Receive Date: 20250731
  Receipt Date: 20250731
  Transmission Date: 20251020
  Serious: Yes (Other)
  Sender: AMGEN
  Company Number: US-AMGEN-USASP2025144054

PATIENT
  Age: 58 Year
  Sex: Male

DRUGS (2)
  1. PREDNISONE [Suspect]
     Active Substance: PREDNISONE
     Indication: Immunosuppressant drug therapy
     Route: 065
  2. SIROLIMUS [Concomitant]
     Active Substance: SIROLIMUS
     Indication: Immunosuppressant drug therapy

REACTIONS (7)
  - Skin cancer [Unknown]
  - Ventricular tachycardia [Unknown]
  - Squamous cell carcinoma of skin [Unknown]
  - Osteomyelitis bacterial [Recovering/Resolving]
  - Lupus anticoagulant hypoprothrombinaemia syndrome [Unknown]
  - Skin graft failure [Unknown]
  - Osteoradionecrosis [Recovering/Resolving]

NARRATIVE: CASE EVENT DATE: 20140101
